FAERS Safety Report 25776742 (Version 1)
Quarter: 2025Q3

REPORT INFORMATION
  Report Type: Spontaneous
  Country: US (occurrence: US)
  Receive Date: 20250909
  Receipt Date: 20250909
  Transmission Date: 20251021
  Serious: No
  Sender: DOMPE FARMACEUTICI
  Company Number: US-FARMAPROD-202503-0900

PATIENT
  Age: 92 Year
  Sex: Female

DRUGS (23)
  1. OXERVATE [Suspect]
     Active Substance: CENEGERMIN-BKBJ
     Indication: Neurotrophic keratopathy
     Route: 047
     Dates: start: 20250317
  2. OXERVATE [Suspect]
     Active Substance: CENEGERMIN-BKBJ
  3. KETOCONAZOLE [Concomitant]
     Active Substance: KETOCONAZOLE
  4. HYDROCORTISONE/ALOE [Concomitant]
  5. VITAMIN D3 [Concomitant]
     Active Substance: CHOLECALCIFEROL
  6. ASPIRIN [Concomitant]
     Active Substance: ASPIRIN
  7. TYLENOL [Concomitant]
     Active Substance: ACETAMINOPHEN
  8. VITAMIN B12 [Concomitant]
     Active Substance: CYANOCOBALAMIN
  9. TRAMADOL HCL [Concomitant]
     Active Substance: TRAMADOL HYDROCHLORIDE
  10. VITAMIN E [Concomitant]
     Active Substance: .ALPHA.-TOCOPHEROL
  11. MAGNESIUM CHLORIDE [Concomitant]
     Active Substance: MAGNESIUM CHLORIDE
  12. VITAMINS [Concomitant]
     Active Substance: VITAMINS
  13. VALTREX [Concomitant]
     Active Substance: VALACYCLOVIR HYDROCHLORIDE
  14. LOSARTAN POTASSIUM [Concomitant]
     Active Substance: LOSARTAN POTASSIUM
  15. PROBIOTICS NOS [Concomitant]
     Active Substance: PROBIOTICS NOS
  16. VITAMIN B COMPLEX [Concomitant]
     Active Substance: CYANOCOBALAMIN\DEXPANTHENOL\NIACINAMIDE\PYRIDOXINE HYDROCHLORIDE\RIBOFLAVIN 5^-PHOSPHATE SODIUM\THIA
  17. METOPROLOL SUCCINATE [Concomitant]
     Active Substance: METOPROLOL SUCCINATE
  18. VITAMIN D2 [Concomitant]
     Active Substance: ERGOCALCIFEROL
  19. FUROSEMIDE [Concomitant]
     Active Substance: FUROSEMIDE
  20. SYNTHROID [Concomitant]
     Active Substance: LEVOTHYROXINE SODIUM
  21. TRESIBA [Concomitant]
     Active Substance: INSULIN DEGLUDEC
  22. HUMALOG KWIKPEN [Concomitant]
     Active Substance: INSULIN LISPRO
  23. ROSUVASTATIN CALCIUM [Concomitant]
     Active Substance: ROSUVASTATIN CALCIUM

REACTIONS (12)
  - Lacrimation increased [Unknown]
  - Headache [Unknown]
  - Wrong technique in product usage process [Unknown]
  - Eye pruritus [Unknown]
  - Stress [Unknown]
  - Inappropriate schedule of product administration [Unknown]
  - Facial pain [Unknown]
  - Eye pain [Not Recovered/Not Resolved]
  - Eye swelling [Not Recovered/Not Resolved]
  - Ocular hyperaemia [Not Recovered/Not Resolved]
  - Swelling of eyelid [Unknown]
  - Photophobia [Unknown]

NARRATIVE: CASE EVENT DATE: 20250317
